FAERS Safety Report 7256098-9 (Version None)
Quarter: 2011Q1

REPORT INFORMATION
  Report Type: 
  Country: None (occurrence: None)
  Receive Date: 20110129
  Receipt Date: 20100602
  Transmission Date: 20110831
  Serious: No
  Sender: FDA-Public Use
  Company Number: US-ABBOTT-10P-163-0643278-00

PATIENT
  Age: 62 Year
  Sex: Female

DRUGS (6)
  1. ZALATAN [Concomitant]
     Indication: EYE DISORDER
  2. AVISTA [Concomitant]
     Indication: PRODUCT USED FOR UNKNOWN INDICATION
  3. MUCINEX [Concomitant]
     Indication: PRODUCT USED FOR UNKNOWN INDICATION
  4. HUMIRA [Suspect]
     Indication: RHEUMATOID ARTHRITIS
     Dates: start: 20031201, end: 20100411
  5. BACTRIM [Concomitant]
     Indication: PRODUCT USED FOR UNKNOWN INDICATION
  6. COZAAR [Concomitant]
     Indication: PRODUCT USED FOR UNKNOWN INDICATION

REACTIONS (2)
  - BRONCHITIS [None]
  - COUGH [None]
